FAERS Safety Report 8020292-X (Version None)
Quarter: 2012Q1

REPORT INFORMATION
  Report Type: 
  Country: None (occurrence: None)
  Receive Date: 20120103
  Receipt Date: 20111227
  Transmission Date: 20120608
  Serious: Yes (Death)
  Sender: FDA-Public Use
  Company Number: JP-ROCHE-771008

PATIENT
  Sex: Male
  Weight: 62 kg

DRUGS (9)
  1. AVASTIN [Suspect]
     Indication: LUNG ADENOCARCINOMA METASTATIC
     Dosage: DOSE INTERRUPTED
     Route: 041
     Dates: start: 20110117, end: 20110328
  2. ACTOS [Concomitant]
     Indication: DIABETES MELLITUS
     Route: 048
  3. SENNOSIDE [Concomitant]
     Indication: CONSTIPATION
     Route: 048
  4. NOVORAPID [Concomitant]
     Indication: DIABETES MELLITUS
     Route: 058
  5. CARBOPLATIN [Suspect]
     Indication: LUNG ADENOCARCINOMA METASTATIC
     Dosage: DOSE INTERRUPTED
     Route: 041
     Dates: start: 20110117, end: 20110328
  6. ALOSENN [Concomitant]
     Indication: CONSTIPATION
     Dosage: FORM: GRANULATED POWDER
     Route: 048
  7. PACLITAXEL [Suspect]
     Indication: LUNG ADENOCARCINOMA METASTATIC
     Route: 041
     Dates: start: 20110117, end: 20110328
  8. NORVASC [Concomitant]
     Indication: HYPERTENSION
     Route: 048
  9. OLMESARTAN MEDOXOMIL [Concomitant]
     Indication: HYPERTENSION
     Route: 048

REACTIONS (4)
  - INFECTION [None]
  - PYREXIA [None]
  - SEPTIC SHOCK [None]
  - SUDDEN DEATH [None]
